FAERS Safety Report 13953805 (Version 1)
Quarter: 2017Q3

REPORT INFORMATION
  Report Type: Spontaneous
  Country: US (occurrence: US)
  Receive Date: 20170908
  Receipt Date: 20170908
  Transmission Date: 20171128
  Serious: No
  Sender: FDA-Public Use
  Company Number: None

PATIENT
  Age: 40 Year
  Sex: Male
  Weight: 148.5 kg

DRUGS (6)
  1. CLONAZEPAM. [Concomitant]
     Active Substance: CLONAZEPAM
  2. LAMOTRIGINE. [Concomitant]
     Active Substance: LAMOTRIGINE
  3. DEXTROAMPHET SACCHARAT, AMPHET ASPARTATE, DEXTROAMPHET SULFATE AND AMPHET SULFAT [Suspect]
     Active Substance: AMPHETAMINE ASPARTATE\AMPHETAMINE SULFATE\DEXTROAMPHETAMINE SACCHARATE\DEXTROAMPHETAMINE SULFATE
     Indication: ATTENTION DEFICIT/HYPERACTIVITY DISORDER
     Route: 048
     Dates: start: 20170307, end: 20170908
  4. DEXTROAMPHET SACCHARAT, AMPHET ASPARTATE, DEXTROAMPHET SULFATE AND AMPHET SULFAT [Suspect]
     Active Substance: AMPHETAMINE ASPARTATE\AMPHETAMINE SULFATE\DEXTROAMPHETAMINE SACCHARATE\DEXTROAMPHETAMINE SULFATE
     Indication: DEPRESSION
     Route: 048
     Dates: start: 20170307, end: 20170908
  5. TOPIRAMATE. [Concomitant]
     Active Substance: TOPIRAMATE
  6. LATUDA [Concomitant]
     Active Substance: LURASIDONE HYDROCHLORIDE

REACTIONS (5)
  - Product substitution issue [None]
  - Disturbance in attention [None]
  - Suicidal ideation [None]
  - Apathy [None]
  - Depressed mood [None]

NARRATIVE: CASE EVENT DATE: 20170908
